FAERS Safety Report 4424714-2 (Version None)
Quarter: 2004Q3

REPORT INFORMATION
  Report Type: 
  Country: None (occurrence: None)
  Receive Date: 20040809
  Receipt Date: 20040727
  Transmission Date: 20050211
  Serious: Yes (Hospitalization)
  Sender: FDA-Public Use
  Company Number: AU-JNJFOC-20040800348

PATIENT
  Age: 12 Year
  Sex: Male
  Weight: 43 kg

DRUGS (3)
  1. ACETAMINOPHEN [Suspect]
     Dosage: 3000 MG (70 MG/KG) IN FIRST 24 HOURS TO A MAXIMUM OF 4650 MG (180 MG/KG) OVER THE NEXT 5 DAYS
  2. CEFAZOLIN [Concomitant]
  3. MORPHINE [Concomitant]

REACTIONS (12)
  - AMMONIA INCREASED [None]
  - ASPARTATE AMINOTRANSFERASE INCREASED [None]
  - BLOOD BILIRUBIN INCREASED [None]
  - DISORIENTATION [None]
  - DRUG LEVEL ABOVE THERAPEUTIC [None]
  - GAMMA-GLUTAMYLTRANSFERASE INCREASED [None]
  - HAEMOGLOBIN DECREASED [None]
  - ILEUS PARALYTIC [None]
  - IRRITABILITY [None]
  - JAUNDICE [None]
  - LETHARGY [None]
  - PALLOR [None]
